FAERS Safety Report 10170916 (Version 2)
Quarter: 2014Q2

REPORT INFORMATION
  Report Type: Spontaneous
  Country: ZA (occurrence: ZA)
  Receive Date: 20140514
  Receipt Date: 20140610
  Transmission Date: 20141212
  Serious: Yes (Death)
  Sender: FDA-Public Use
  Company Number: ZA-009507513-1405ZAF004696

PATIENT
  Sex: Male

DRUGS (1)
  1. CANCIDAS 50MG [Suspect]
     Indication: ANTIFUNGAL TREATMENT
     Dosage: UNK
     Dates: start: 20140322, end: 20140322

REACTIONS (1)
  - Death [Fatal]
